FAERS Safety Report 4835579-9 (Version None)
Quarter: 2005Q4

REPORT INFORMATION
  Report Type: 
  Country: None (occurrence: None)
  Receive Date: 20051121
  Receipt Date: 20051109
  Transmission Date: 20060501
  Serious: Yes (Death)
  Sender: FDA-Public Use
  Company Number: MEDI-0003821

PATIENT
  Age: 6 Year
  Sex: Female
  Weight: 12.5 kg

DRUGS (11)
  1. SYNAGIS [Suspect]
     Indication: ANTIVIRAL PROPHYLAXIS
     Dosage: 187.5 MG, 1 IN 30 D, INTRAMUSCULAR
     Route: 030
     Dates: start: 20051019, end: 20051019
  2. LASIX [Concomitant]
  3. SPIRONOLACTONE [Concomitant]
  4. POTASSIUM (POTASSIUM) [Concomitant]
  5. SODIUM CHLORIDE 0.9% [Concomitant]
  6. PULMICORT [Concomitant]
  7. ALBUTEROL [Concomitant]
  8. CALCIFEROL (ERGOCALCIFEROL) [Concomitant]
  9. MERILAX [Concomitant]
  10. ROBITUSSIN (GUAIFENESIN) [Concomitant]
  11. OCTREOTIDE ACETATE [Concomitant]

REACTIONS (8)
  - BLOOD POTASSIUM INCREASED [None]
  - DIARRHOEA [None]
  - DYSPNOEA [None]
  - NASAL CONGESTION [None]
  - RENAL FAILURE ACUTE [None]
  - RHINORRHOEA [None]
  - VENTRICULAR ARRHYTHMIA [None]
  - WEIGHT INCREASED [None]
